FAERS Safety Report 7341620-4 (Version None)
Quarter: 2011Q1

REPORT INFORMATION
  Report Type: 
  Country: None (occurrence: None)
  Receive Date: 20110228
  Receipt Date: 20110211
  Transmission Date: 20110831
  Serious: Yes (Hospitalization)
  Sender: FDA-Public Use
  Company Number: 012235

PATIENT
  Age: 6 Year
  Sex: Male
  Weight: 22 kg

DRUGS (4)
  1. LEVETIRACETAM [Suspect]
     Indication: PARTIAL SEIZURES
     Dosage: 1000 MG
  2. LAMICTAL [Concomitant]
  3. TOPIRAMATE [Concomitant]
  4. LUMINAL /00023201/ [Concomitant]

REACTIONS (4)
  - ASTHENIA [None]
  - CONDITION AGGRAVATED [None]
  - GRAND MAL CONVULSION [None]
  - MYOCLONIC EPILEPSY [None]
